FAERS Safety Report 26191850 (Version 1)
Quarter: 2025Q4

REPORT INFORMATION
  Report Type: Spontaneous
  Country: AU (occurrence: AU)
  Receive Date: 20251223
  Receipt Date: 20251223
  Transmission Date: 20260117
  Serious: Yes (Other)
  Sender: VERTEX
  Company Number: AU-VERTEX PHARMACEUTICALS-2025-021743

PATIENT

DRUGS (1)
  1. TRIKAFTA [Suspect]
     Active Substance: ELEXACAFTOR\IVACAFTOR\TEZACAFTOR
     Indication: Cystic fibrosis
     Dosage: UNKNOWN DOSAGE REGIMEN
     Route: 061

REACTIONS (9)
  - Stevens-Johnson syndrome [Unknown]
  - Aggression [Unknown]
  - Attention deficit hyperactivity disorder [Unknown]
  - Mental disorder [Unknown]
  - Behaviour disorder [Unknown]
  - Sleep disorder [Unknown]
  - Depressed mood [Unknown]
  - Liver function test increased [Unknown]
  - Rash [Unknown]
